FAERS Safety Report 4919695-9 (Version None)
Quarter: 2006Q1

REPORT INFORMATION
  Report Type: 
  Country: None (occurrence: None)
  Receive Date: 20060217
  Receipt Date: 20060206
  Transmission Date: 20060701
  Serious: Yes (Hospitalization)
  Sender: FDA-Public Use
  Company Number: HQWYE692407FEB06

PATIENT
  Age: 72 Year
  Sex: Male

DRUGS (7)
  1. CORDARONE [Suspect]
     Indication: VENTRICULAR TACHYCARDIA
     Dosage: 200 MG 5X PER 1 WK, ORAL
     Route: 048
     Dates: start: 20040201, end: 20041014
  2. AMLODIPINE BESYLATE [Suspect]
     Indication: HYPERTENSION
     Dosage: 5 MG 1X PER 1 DAY, ORAL
     Route: 048
  3. PRAVASTATIN [Suspect]
     Indication: HYPERLIPIDAEMIA
     Dosage: 20 MG 1X PER 1 DAY, ORAL
     Route: 048
  4. IKOREL (NICORANDIL, ) [Suspect]
     Indication: MYOCARDIAL ISCHAEMIA
     Dosage: 10 MG 2X PER 1 DAY, ORAL
     Route: 048
  5. ASPIRIN [Suspect]
     Indication: MYOCARDIAL ISCHAEMIA
     Dosage: 75 MG 1X  PER 1 DAY, ORAL
     Route: 048
  6. SECTRAL [Suspect]
     Indication: HYPERTENSION
     Dosage: 400 MG 1X PER 1 DAY, ORAL
     Route: 048
  7. NATISPRAY (GLYCERYL TRINITRATE) [Concomitant]

REACTIONS (5)
  - CONDITION AGGRAVATED [None]
  - LEUKOCYTOSIS [None]
  - LUNG DISORDER [None]
  - MYOCARDIAL ISCHAEMIA [None]
  - PYREXIA [None]
